FAERS Safety Report 22067043 (Version 1)
Quarter: 2023Q1

REPORT INFORMATION
  Report Type: Spontaneous
  Country: NO (occurrence: NO)
  Receive Date: 20230306
  Receipt Date: 20230306
  Transmission Date: 20230418
  Serious: Yes (Hospitalization, Other)
  Sender: FDA-Public Use
  Company Number: None

PATIENT
  Age: 57 Year
  Sex: Male
  Weight: 126 kg

DRUGS (2)
  1. OZEMPIC [Suspect]
     Active Substance: SEMAGLUTIDE
     Indication: Overweight
     Dosage: 0.5 ML, QW
     Dates: start: 2021, end: 202210
  2. TESTOSTERONE [Concomitant]
     Active Substance: TESTOSTERONE
     Indication: Fatigue
     Dosage: 50 MG, QD
     Dates: start: 2017

REACTIONS (6)
  - Cholecystectomy [Unknown]
  - Biliary obstruction [Recovered/Resolved]
  - Cholelithiasis [Recovered/Resolved]
  - Biliary colic [Recovered/Resolved]
  - Jaundice [Unknown]
  - Product use in unapproved indication [Unknown]

NARRATIVE: CASE EVENT DATE: 20220701
